FAERS Safety Report 4464089-6 (Version None)
Quarter: 2004Q4

REPORT INFORMATION
  Report Type: 
  Country: None (occurrence: None)
  Receive Date: 20041001
  Receipt Date: 20040923
  Transmission Date: 20050328
  Serious: Yes (Death, Hospitalization)
  Sender: FDA-Public Use
  Company Number: US-AMGEN-US091942

PATIENT
  Sex: Male
  Weight: 72.6 kg

DRUGS (18)
  1. ARANESP [Suspect]
     Indication: ANAEMIA OF MALIGNANT DISEASE
     Route: 058
     Dates: start: 20031001, end: 20040728
  2. DURAGESIC [Concomitant]
     Route: 062
  3. LEVAQUIN [Concomitant]
  4. NEUPOGEN [Concomitant]
     Indication: CHEMOTHERAPY
  5. NEUMEGA [Concomitant]
  6. NEULASTA [Concomitant]
     Indication: CHEMOTHERAPY
  7. ADRIAMYCIN PFS [Concomitant]
     Dates: start: 20031110, end: 20040409
  8. VINBLASTINE SULFATE [Concomitant]
     Dates: start: 20031110, end: 20040409
  9. BLEOMYCIN [Concomitant]
     Dates: start: 20031110, end: 20040409
  10. DACARBAZINE [Concomitant]
     Dates: start: 20031110, end: 20040409
  11. ANZEMET [Concomitant]
     Dates: start: 20031110, end: 20040409
  12. DECADRON [Concomitant]
     Dates: start: 20031110, end: 20040409
  13. PREVACID [Concomitant]
  14. LANOXIN [Concomitant]
  15. HYDROCODONE [Concomitant]
     Dates: start: 20040409, end: 20040817
  16. PROMETHAZINE [Concomitant]
  17. GLIPIZIDE [Concomitant]
  18. PROCRIT [Concomitant]
     Dates: start: 20040723, end: 20040723

REACTIONS (7)
  - BONE MARROW DEPRESSION [None]
  - COLLAGEN DISORDER [None]
  - FIBROSIS [None]
  - HODGKIN'S DISEASE [None]
  - MALIGNANT NEOPLASM PROGRESSION [None]
  - PLEURAL EFFUSION [None]
  - PNEUMONIA [None]
